FAERS Safety Report 7769901-0 (Version None)
Quarter: 2011Q3

REPORT INFORMATION
  Report Type: 
  Country: None (occurrence: None)
  Receive Date: 20110922
  Receipt Date: 20110916
  Transmission Date: 20111222
  Serious: Yes (Hospitalization)
  Sender: FDA-Public Use
  Company Number: US-GLAXOSMITHKLINE-A0811619A

PATIENT
  Sex: Male
  Weight: 136.4 kg

DRUGS (2)
  1. AVANDIA [Suspect]
     Indication: TYPE 2 DIABETES MELLITUS
     Dosage: 4MG TWICE PER DAY
     Route: 048
     Dates: start: 20050405, end: 20070316
  2. AVANDAMET [Suspect]
     Indication: TYPE 2 DIABETES MELLITUS
     Route: 048
     Dates: start: 20041204, end: 20050405

REACTIONS (6)
  - SCHIZOPHRENIA [None]
  - CARDIAC FAILURE [None]
  - HYPERLIPIDAEMIA [None]
  - ARRHYTHMIA [None]
  - PALPITATIONS [None]
  - CARDIAC DISORDER [None]
